FAERS Safety Report 9002115 (Version 1)
Quarter: 2013Q1

REPORT INFORMATION
  Report Type: Spontaneous
  Country: US (occurrence: None)
  Receive Date: 20130103
  Receipt Date: 20130103
  Transmission Date: 20140127
  Serious: Yes (Life-Threatening, Disabling, Other)
  Sender: FDA-Public Use
  Company Number: None

PATIENT
  Age: 47 Year
  Sex: Male
  Weight: 102.06 kg

DRUGS (2)
  1. FLEXERIL [Suspect]
     Indication: ROTATOR CUFF SYNDROME
     Route: 048
     Dates: start: 20100203, end: 20120901
  2. FLEXERIL [Suspect]
     Indication: WRIST FRACTURE
     Route: 048
     Dates: start: 20100203, end: 20120901

REACTIONS (3)
  - Adverse event [None]
  - Unevaluable event [None]
  - Injury [None]
